FAERS Safety Report 13524076 (Version 4)
Quarter: 2018Q4

REPORT INFORMATION
  Report Type: Spontaneous
  Country: US (occurrence: US)
  Receive Date: 20170508
  Receipt Date: 20181114
  Transmission Date: 20190204
  Serious: Yes (Hospitalization, Other)
  Sender: FDA-Public Use
  Company Number: US-DSJP-DSU-2017-106387

PATIENT

DRUGS (1)
  1. BENICAR [Suspect]
     Active Substance: OLMESARTAN MEDOXOMIL
     Indication: HYPERTENSION
     Dosage: 40 MG, QD
     Route: 048
     Dates: start: 20120205

REACTIONS (10)
  - Hypotension [Recovering/Resolving]
  - Gastrointestinal haemorrhage [Unknown]
  - Impaired gastric emptying [Unknown]
  - Gastrointestinal bacterial overgrowth [Unknown]
  - Acute kidney injury [Not Recovered/Not Resolved]
  - Melaena [Unknown]
  - Syncope [Recovering/Resolving]
  - Arthralgia [Not Recovered/Not Resolved]
  - Sprue-like enteropathy [Not Recovered/Not Resolved]
  - Nephrogenic anaemia [Unknown]

NARRATIVE: CASE EVENT DATE: 20120216
